FAERS Safety Report 13328822 (Version 1)
Quarter: 2017Q1

REPORT INFORMATION
  Report Type: Spontaneous
  Country: US (occurrence: US)
  Receive Date: 20170312
  Receipt Date: 20170312
  Transmission Date: 20170428
  Serious: Yes (Life-Threatening, Disabling)
  Sender: FDA-Public Use
  Company Number: None

PATIENT
  Age: 70 Year
  Sex: Female
  Weight: 65.25 kg

DRUGS (6)
  1. NEURONTIN [Suspect]
     Active Substance: GABAPENTIN
     Indication: FIBROMYALGIA
  2. OXYCODONE [Concomitant]
     Active Substance: OXYCODONE
  3. ANASTRAZOLE [Concomitant]
     Active Substance: ANASTROZOLE
  4. VITAMINS [Concomitant]
     Active Substance: VITAMINS
  5. LYRICA [Suspect]
     Active Substance: PREGABALIN
     Indication: FIBROMYALGIA
  6. GABAPENTIN. [Concomitant]
     Active Substance: GABAPENTIN

REACTIONS (2)
  - Invasive ductal breast carcinoma [None]
  - Breast swelling [None]

NARRATIVE: CASE EVENT DATE: 20161011
